FAERS Safety Report 6064486-1 (Version None)
Quarter: 2009Q1

REPORT INFORMATION
  Report Type: 
  Country: None (occurrence: None)
  Receive Date: 20090204
  Receipt Date: 20090203
  Transmission Date: 20090719
  Serious: Yes (Other)
  Sender: FDA-Public Use
  Company Number: US-BAYER-200814090BCC

PATIENT
  Age: 16 Year
  Sex: Male
  Weight: 59 kg

DRUGS (1)
  1. ALKA-SELTZER PLUS EFFERVESCENT SPARKLING ORIGINAL COLD [Suspect]
     Indication: NASOPHARYNGITIS
     Dates: start: 20081001

REACTIONS (1)
  - EPISTAXIS [None]
